FAERS Safety Report 5027216-8 (Version None)
Quarter: 2006Q2

REPORT INFORMATION
  Report Type: 
  Country: None (occurrence: None)
  Receive Date: 20060501
  Receipt Date: 20060206
  Transmission Date: 20061013
  Serious: No
  Sender: FDA-Public Use
  Company Number: 200610691BWH

PATIENT
  Age: 25 Year
  Sex: Female

DRUGS (5)
  1. NEXAVAR [Suspect]
     Indication: RENAL CELL CARCINOMA STAGE UNSPECIFIED
     Dosage: 400 MG, BID, ORAL
     Route: 048
     Dates: start: 20060208, end: 20060214
  2. NEXAVAR [Suspect]
     Indication: RENAL CELL CARCINOMA STAGE UNSPECIFIED
     Dosage: 400 MG, BID, ORAL
     Route: 048
     Dates: start: 20060131
  3. MARINOL [Concomitant]
  4. VICODIN [Concomitant]
  5. VITAMIN SUPPLEMENT [Concomitant]

REACTIONS (7)
  - ALOPECIA [None]
  - ARTHRALGIA [None]
  - DERMATITIS ACNEIFORM [None]
  - FATIGUE [None]
  - FLUSHING [None]
  - PAIN OF SKIN [None]
  - RASH ERYTHEMATOUS [None]
